FAERS Safety Report 17130861 (Version 1)
Quarter: 2019Q4

REPORT INFORMATION
  Report Type: Spontaneous
  Country: US (occurrence: US)
  Receive Date: 20191209
  Receipt Date: 20191209
  Transmission Date: 20200122
  Serious: No
  Sender: FDA-Public Use
  Company Number: US-ROCHE-2290724

PATIENT
  Sex: Male
  Weight: 97.61 kg

DRUGS (4)
  1. VALIUM [Suspect]
     Active Substance: DIAZEPAM
     Route: 048
  2. HYDROCODONE [Concomitant]
     Active Substance: HYDROCODONE
     Dosage: ONGOING: YES
     Route: 065
     Dates: start: 2004
  3. VALIUM [Suspect]
     Active Substance: DIAZEPAM
     Indication: ANXIETY
     Dosage: ONGOING: YES
     Route: 048
     Dates: start: 1987
  4. FLONASE [Concomitant]
     Active Substance: FLUTICASONE PROPIONATE
     Dosage: ONGOING: NO
     Route: 065

REACTIONS (2)
  - Pain [Not Recovered/Not Resolved]
  - Gait disturbance [Not Recovered/Not Resolved]
